FAERS Safety Report 9521192 (Version 1)
Quarter: 2013Q3

REPORT INFORMATION
  Report Type: Spontaneous
  Country: TR (occurrence: None)
  Receive Date: 20130911
  Receipt Date: 20130911
  Transmission Date: 20140515
  Serious: No
  Sender: FDA-Public Use
  Company Number: AETUR201300080

PATIENT
  Age: 37 Year
  Sex: Female

DRUGS (2)
  1. GAMUNEX [Suspect]
     Indication: MYASTHENIA GRAVIS
     Route: 042
  2. PYRIDOSTIGMINE (PYRIDOSTIGMINE) [Suspect]
     Indication: BULBAR PALSY

REACTIONS (1)
  - Eczema [None]
